FAERS Safety Report 6565233-7 (Version None)
Quarter: 2010Q1

REPORT INFORMATION
  Report Type: 
  Country: None (occurrence: None)
  Receive Date: 20100201
  Receipt Date: 20100125
  Transmission Date: 20100710
  Serious: Yes (Death, Life-Threatening)
  Sender: FDA-Public Use
  Company Number: JP-ROCHE-664912

PATIENT
  Sex: Female
  Weight: 39 kg

DRUGS (20)
  1. TOCILIZUMAB [Suspect]
     Indication: RHEUMATOID ARTHRITIS
     Route: 041
     Dates: start: 20081125, end: 20081125
  2. TOCILIZUMAB [Suspect]
     Route: 041
     Dates: start: 20081225, end: 20081225
  3. TOCILIZUMAB [Suspect]
     Route: 041
     Dates: start: 20090120, end: 20090120
  4. TOCILIZUMAB [Suspect]
     Route: 041
     Dates: start: 20090219, end: 20090219
  5. TOCILIZUMAB [Suspect]
     Route: 041
     Dates: start: 20090324, end: 20090324
  6. TOCILIZUMAB [Suspect]
     Route: 041
     Dates: start: 20090421, end: 20090421
  7. TOCILIZUMAB [Suspect]
     Route: 041
     Dates: start: 20090519, end: 20090519
  8. TOCILIZUMAB [Suspect]
     Route: 041
     Dates: start: 20090616, end: 20090616
  9. TOCILIZUMAB [Suspect]
     Route: 041
     Dates: start: 20090714, end: 20090714
  10. TOCILIZUMAB [Suspect]
     Route: 041
     Dates: start: 20090811, end: 20090811
  11. TOCILIZUMAB [Suspect]
     Route: 041
     Dates: start: 20090910, end: 20090910
  12. TOCILIZUMAB [Suspect]
     Route: 041
     Dates: start: 20091008, end: 20091008
  13. PREDONINE [Suspect]
     Indication: RHEUMATOID ARTHRITIS
     Route: 048
     Dates: start: 20080729, end: 20081007
  14. PREDONINE [Suspect]
     Route: 048
     Dates: start: 20081008, end: 20090120
  15. PREDONINE [Suspect]
     Route: 048
     Dates: start: 20090121, end: 20090217
  16. PREDONINE [Suspect]
     Route: 048
     Dates: start: 20090218, end: 20091101
  17. PROTECADIN [Suspect]
     Indication: DRUG USE FOR UNKNOWN INDICATION
     Route: 048
  18. ALOSENN [Suspect]
     Indication: DRUG USE FOR UNKNOWN INDICATION
     Route: 048
  19. FOSAMAX [Concomitant]
     Dosage: DRUG NAME REPORTED AS FOSAMAC 35 MG
     Route: 048
     Dates: end: 20090101
  20. FERROMIA [Concomitant]
     Route: 048
     Dates: start: 20090520, end: 20090804

REACTIONS (8)
  - CARDIAC ARREST [None]
  - DIVERTICULITIS [None]
  - LARGE INTESTINE PERFORATION [None]
  - LIVER ABSCESS [None]
  - PERITONITIS [None]
  - SEPSIS [None]
  - VENTRICULAR FIBRILLATION [None]
  - VENTRICULAR TACHYCARDIA [None]
